FAERS Safety Report 10044693 (Version 3)
Quarter: 2014Q2

REPORT INFORMATION
  Report Type: Report from Study
  Country: CA (occurrence: CA)
  Receive Date: 20140328
  Receipt Date: 20140522
  Transmission Date: 20141212
  Serious: Yes (Other)
  Sender: FDA-Public Use
  Company Number: CA-JNJFOC-20130817524

PATIENT
  Age: 38 Year
  Sex: Female
  Weight: 56 kg

DRUGS (3)
  1. REMICADE [Suspect]
     Indication: PSORIATIC ARTHROPATHY
     Route: 042
     Dates: start: 20140410
  2. REMICADE [Suspect]
     Indication: PSORIATIC ARTHROPATHY
     Route: 042
     Dates: start: 20130302, end: 20130717
  3. DOMPERIDONE [Concomitant]
     Indication: BREAST FEEDING
     Route: 065

REACTIONS (2)
  - High risk pregnancy [Recovered/Resolved]
  - Exposure during pregnancy [Recovered/Resolved]
